FAERS Safety Report 25087167 (Version 2)
Quarter: 2025Q3

REPORT INFORMATION
  Report Type: Spontaneous
  Country: EU (occurrence: EU)
  Receive Date: 20250318
  Receipt Date: 20250710
  Transmission Date: 20251020
  Serious: Yes (Hospitalization)
  Sender: RANBAXY
  Company Number: EU-SUN PHARMACEUTICAL INDUSTRIES LTD-2025RR-499865

PATIENT
  Age: 19 Year
  Sex: Female

DRUGS (1)
  1. MORPHINE [Suspect]
     Active Substance: MORPHINE
     Indication: Abdominal pain
     Dosage: 22.68 MILLIGRAM, DAILY
     Route: 040
     Dates: start: 20240828

REACTIONS (1)
  - Hyperaesthesia [Recovering/Resolving]

NARRATIVE: CASE EVENT DATE: 20241119
